FAERS Safety Report 23292039 (Version 1)
Quarter: 2023Q4

REPORT INFORMATION
  Report Type: Spontaneous
  Country: DE (occurrence: DE)
  Receive Date: 20231213
  Receipt Date: 20231213
  Transmission Date: 20240110
  Serious: Yes (Other)
  Sender: FDA-Public Use
  Company Number: None

PATIENT
  Sex: Female

DRUGS (8)
  1. LEVETIRACETAM [Suspect]
     Active Substance: LEVETIRACETAM
     Indication: Generalised tonic-clonic seizure
     Dosage: UNK
  2. BRIVARACETAM [Suspect]
     Active Substance: BRIVARACETAM
     Indication: Generalised tonic-clonic seizure
     Dosage: 50 MILLIGRAM, 2X/DAY (BID)
     Dates: start: 201602, end: 20160809
  3. BRIVARACETAM [Suspect]
     Active Substance: BRIVARACETAM
     Dosage: 75 MILLIGRAM, DAILY (QD) (25 MILLIGRAM AND 50 MILLIGRAM TWICE DAILY) )
     Dates: start: 20160810
  4. ZONISAMIDE [Suspect]
     Active Substance: ZONISAMIDE
     Indication: Generalised tonic-clonic seizure
     Dosage: 500 MILLIGRAM, ONCE DAILY (QD)
     Dates: end: 201606
  5. SULTHIAME [Suspect]
     Active Substance: SULTHIAME
     Indication: Generalised tonic-clonic seizure
     Dosage: UNK
  6. LAMOTRIGINE [Suspect]
     Active Substance: LAMOTRIGINE
     Indication: Generalised tonic-clonic seizure
     Dosage: UNK
  7. VALPROATE [Suspect]
     Active Substance: VALPROIC ACID
     Indication: Generalised tonic-clonic seizure
     Dosage: 600 MILLIGRAM, 2X/DAY (BID)
     Dates: end: 20160810
  8. POTASSIUM BROMIDE [Suspect]
     Active Substance: POTASSIUM BROMIDE
     Indication: Generalised tonic-clonic seizure
     Dosage: UNK

REACTIONS (8)
  - Multiple-drug resistance [Unknown]
  - Epilepsy [Unknown]
  - Weight increased [Unknown]
  - Weight decreased [Recovered/Resolved]
  - Bromoderma [Unknown]
  - Aggression [Unknown]
  - Behaviour disorder [Unknown]
  - Off label use [Unknown]
